FAERS Safety Report 8622826-0 (Version None)
Quarter: 2012Q3

REPORT INFORMATION
  Report Type: 
  Country: None (occurrence: None)
  Receive Date: 20120827
  Receipt Date: 20120813
  Transmission Date: 20120928
  Serious: Yes (Congenital Anomaly, Other)
  Sender: FDA-Public Use
  Company Number: DE-RANBAXY-2012RR-59117

PATIENT
  Sex: Male
  Weight: 3.8 kg

DRUGS (5)
  1. AMOXCLAV SANDOZ [Concomitant]
     Dosage: 375 [MG/DAY (3 X 125)]/ 1500 [MG/DAY 3X500)]
     Route: 064
     Dates: start: 20110420, end: 20110427
  2. FEMIBION [Concomitant]
     Dosage: 0.4 MG/DAY
     Route: 064
  3. OTRIVIN [Suspect]
     Dosage: UNK
     Route: 064
     Dates: start: 20110308, end: 20111214
  4. CETIRIZINE [Suspect]
     Dosage: 10 MG/DAY
     Route: 064
     Dates: start: 20110308, end: 20110428
  5. TD-IMPFSTOFF MERIEUX [Concomitant]
     Dosage: UNK
     Route: 064
     Dates: start: 20110421, end: 20110421

REACTIONS (1)
  - ANAL ATRESIA [None]
